FAERS Safety Report 4867400-7 (Version None)
Quarter: 2005Q4

REPORT INFORMATION
  Report Type: 
  Country: None (occurrence: None)
  Receive Date: 20051228
  Receipt Date: 20051018
  Transmission Date: 20060501
  Serious: Yes (Death, Life-Threatening, Hospitalization)
  Sender: FDA-Public Use
  Company Number: JP-SOLVAY-00305003381

PATIENT
  Age: 57 Year
  Sex: Female
  Weight: 46 kg

DRUGS (5)
  1. FLUVOXAMINE MALEATE [Suspect]
     Indication: DEPRESSION
     Dosage: DAILY DOSE: 100 MILLIGRAM(S)
     Route: 048
     Dates: start: 20050714, end: 20051004
  2. FLUVOXAMINE MALEATE [Suspect]
     Dosage: DAILY DOSE: 150 MILLIGRAM(S)
     Route: 048
     Dates: start: 20051005, end: 20051010
  3. DOGMATYL [Concomitant]
     Indication: DEPRESSION
     Dosage: DAILY DOSE: 100 MILLIGRAM(S)
     Route: 048
     Dates: start: 20050714, end: 20051004
  4. DOGMATYL [Concomitant]
     Dosage: DAILY DOSE: 150 MILLIGRAM(S)
     Route: 048
     Dates: start: 20051005, end: 20051010
  5. SEPAZON [Concomitant]
     Indication: ANXIETY
     Dosage: DAILY DOSE: 3 MILLIGRAM(S)
     Route: 048
     Dates: start: 20050930, end: 20051010

REACTIONS (3)
  - LUPUS ENCEPHALITIS [None]
  - PNEUMONIA [None]
  - SYSTEMIC LUPUS ERYTHEMATOSUS [None]
